FAERS Safety Report 22609611 (Version 1)
Quarter: 2023Q2

REPORT INFORMATION
  Report Type: Spontaneous
  Country: CN (occurrence: CN)
  Receive Date: 20230616
  Receipt Date: 20230616
  Transmission Date: 20230722
  Serious: Yes (Other)
  Sender: FDA-Public Use
  Company Number: None

PATIENT
  Age: 70 Year
  Sex: Male
  Weight: 50 kg

DRUGS (2)
  1. OLANZAPINE [Suspect]
     Active Substance: OLANZAPINE
     Indication: Dementia Alzheimer^s type
     Dosage: 5MG,BID
     Route: 048
     Dates: start: 20230423
  2. OLANZAPINE [Suspect]
     Active Substance: OLANZAPINE
     Indication: Poor quality sleep
     Dosage: 5MG QD
     Route: 048
     Dates: start: 20230510, end: 20230602

REACTIONS (2)
  - Hemiplegia [Recovering/Resolving]
  - Product use in unapproved indication [Unknown]

NARRATIVE: CASE EVENT DATE: 20230423
